FAERS Safety Report 6654077-3 (Version None)
Quarter: 2010Q1

REPORT INFORMATION
  Report Type: 
  Country: None (occurrence: None)
  Receive Date: 20100326
  Receipt Date: 20100317
  Transmission Date: 20100710
  Serious: Yes (Other)
  Sender: FDA-Public Use
  Company Number: PHHY2010JP16610

PATIENT
  Sex: Male

DRUGS (1)
  1. SANDOSTATIN [Suspect]
     Indication: GASTROINTESTINAL OBSTRUCTION
     Route: 058

REACTIONS (5)
  - ASCITES [None]
  - RENAL IMPAIRMENT [None]
  - SWELLING [None]
  - URINARY RETENTION [None]
  - URINE OUTPUT DECREASED [None]
